FAERS Safety Report 9796024 (Version 2)
Quarter: 2014Q1

REPORT INFORMATION
  Report Type: Spontaneous
  Country: US (occurrence: US)
  Receive Date: 20140103
  Receipt Date: 20140103
  Transmission Date: 20141002
  Serious: No
  Sender: FDA-Public Use
  Company Number: US-GILEAD-2010-0032284

PATIENT
  Age: 21 Year
  Sex: Male

DRUGS (21)
  1. CAYSTON [Suspect]
     Indication: CYSTIC FIBROSIS
     Dates: start: 20100915, end: 20100922
  2. PULMOZYME [Concomitant]
     Dates: start: 20040727
  3. XOLAIR [Concomitant]
     Dates: start: 20061117
  4. ALBUTEROL [Concomitant]
  5. SINGULAIR [Concomitant]
     Dates: start: 20050711
  6. PROAIR [Concomitant]
     Dates: start: 20080928
  7. ADVAIR DISKUS [Concomitant]
     Dates: start: 20080318
  8. ADDERALL XR [Concomitant]
     Dates: start: 20040727
  9. ACYCLOVIR [Concomitant]
     Dates: start: 20100710
  10. AZITHROMYCIN [Concomitant]
     Dates: start: 20060419
  11. TOBI [Concomitant]
     Dates: start: 20050711
  12. SPORANOX [Concomitant]
     Dates: start: 20101001
  13. LEVAQUIN [Concomitant]
     Dates: start: 20100930
  14. URSODIOL [Concomitant]
     Dates: start: 20040727
  15. PANCREAZE [Concomitant]
     Dates: start: 20100903
  16. PREVACID [Concomitant]
     Dates: start: 20050601
  17. HYPERSAL [Concomitant]
     Dates: start: 20090306
  18. SOURCE ABDEK [Concomitant]
     Dates: start: 20100920
  19. ERGOCALCIFEROL [Concomitant]
     Dates: start: 20061017
  20. SODIUM CHLORIDE [Concomitant]
     Dates: start: 20101001
  21. CALCIUM + D [Concomitant]
     Dates: start: 20050711

REACTIONS (2)
  - Haemoptysis [Recovered/Resolved]
  - Cough [Recovered/Resolved]
